FAERS Safety Report 24298318 (Version 3)
Quarter: 2024Q4

REPORT INFORMATION
  Report Type: Spontaneous
  Country: US (occurrence: US)
  Receive Date: 20240909
  Receipt Date: 20241009
  Transmission Date: 20250115
  Serious: No
  Sender: SUNOVION
  Company Number: US-SMPA-2024SPA001368AA

PATIENT

DRUGS (6)
  1. ORGOVYX [Suspect]
     Active Substance: RELUGOLIX
     Indication: Prostate cancer
     Dosage: 360 MG, SINGLE
     Route: 048
     Dates: start: 20240728, end: 20240729
  2. ORGOVYX [Suspect]
     Active Substance: RELUGOLIX
     Dosage: 120 MG, QD
     Route: 048
     Dates: start: 20240729
  3. AMLODIPINE [Concomitant]
     Active Substance: AMLODIPINE BESYLATE
     Dosage: UNK
     Route: 065
  4. LOSARTAN [Concomitant]
     Active Substance: LOSARTAN
     Dosage: UNK
     Route: 065
  5. NUBEQA [Concomitant]
     Active Substance: DAROLUTAMIDE
     Route: 065
  6. ESCITALOPRAM OXALATE [Concomitant]
     Active Substance: ESCITALOPRAM OXALATE
     Dosage: 10 MG, QD
     Route: 048

REACTIONS (8)
  - Burning sensation [Unknown]
  - Testicular atrophy [Unknown]
  - Abnormal dreams [Unknown]
  - Chest pain [Unknown]
  - Drug ineffective [Unknown]
  - Insomnia [Unknown]
  - Hot flush [Unknown]
  - Back pain [Unknown]
